FAERS Safety Report 6207616-0 (Version None)
Quarter: 2009Q2

REPORT INFORMATION
  Report Type: 
  Country: None (occurrence: None)
  Receive Date: 20090528
  Receipt Date: 20090520
  Transmission Date: 20091009
  Serious: Yes (Hospitalization, Other)
  Sender: FDA-Public Use
  Company Number: US-AMGEN-QUU334630

PATIENT
  Sex: Male

DRUGS (10)
  1. ENBREL [Suspect]
     Indication: RHEUMATOID ARTHRITIS
     Route: 058
     Dates: start: 20040203, end: 20090101
  2. METHOTREXATE [Concomitant]
     Route: 048
     Dates: start: 20020916, end: 20090121
  3. FOLIC ACID [Concomitant]
  4. ZETIA [Concomitant]
     Route: 048
  5. ATENOLOL [Concomitant]
     Route: 048
  6. VOLTAREN [Concomitant]
     Route: 048
  7. VITAMIN E [Concomitant]
     Route: 048
  8. PEPCID [Concomitant]
     Route: 048
  9. NORCO [Concomitant]
     Route: 048
  10. PREDNISONE [Concomitant]
     Route: 048

REACTIONS (9)
  - BRADYCARDIA [None]
  - CHRONIC INFLAMMATORY DEMYELINATING POLYRADICULONEUROPATHY [None]
  - DEPRESSION [None]
  - ESSENTIAL HYPERTENSION [None]
  - GUILLAIN-BARRE SYNDROME [None]
  - JUGULAR VEIN THROMBOSIS [None]
  - OEDEMA PERIPHERAL [None]
  - PULMONARY EMBOLISM [None]
  - SKIN ULCER [None]
